FAERS Safety Report 7965088-X (Version None)
Quarter: 2011Q4

REPORT INFORMATION
  Report Type: 
  Country: None (occurrence: None)
  Receive Date: 20111208
  Receipt Date: 20111125
  Transmission Date: 20120403
  Serious: Yes (Death, Life-Threatening, Hospitalization, Other)
  Sender: FDA-Public Use
  Company Number: JP-ROCHE-715637

PATIENT
  Sex: Female
  Weight: 39 kg

DRUGS (41)
  1. PROGRAF [Concomitant]
     Indication: RHEUMATOID ARTHRITIS
     Route: 048
  2. CARBOPLATIN [Concomitant]
     Route: 041
     Dates: start: 20100625, end: 20100721
  3. CLARITHROMYCIN [Concomitant]
     Route: 048
  4. AVASTIN [Suspect]
     Indication: LUNG ADENOCARCINOMA
     Route: 041
     Dates: start: 20100625, end: 20100721
  5. ACTEMRA [Suspect]
     Indication: RHEUMATOID ARTHRITIS
     Route: 041
     Dates: start: 20080807, end: 20080807
  6. ACTEMRA [Suspect]
     Route: 041
     Dates: start: 20081126, end: 20081126
  7. ACTEMRA [Suspect]
     Route: 041
     Dates: start: 20090610, end: 20090610
  8. ACTEMRA [Suspect]
     Route: 041
     Dates: start: 20090708, end: 20090708
  9. DICLOFENAC SODIUM [Suspect]
     Indication: RHEUMATOID ARTHRITIS
     Dosage: FORM:SUPPOSITORY RECTALE
     Route: 054
  10. PYDOXAL [Concomitant]
     Indication: PROPHYLAXIS
     Route: 048
  11. EVISTA [Concomitant]
     Indication: OSTEOPOROSIS
     Route: 048
  12. FERROUS CITRATE [Concomitant]
     Indication: PROPHYLAXIS
     Route: 048
  13. CLARITHROMYCIN [Concomitant]
     Indication: PROPHYLAXIS
     Route: 048
  14. ACTEMRA [Suspect]
     Route: 041
     Dates: start: 20081001, end: 20081001
  15. ACTEMRA [Suspect]
     Route: 041
     Dates: start: 20081029, end: 20081029
  16. PREDNISOLONE [Suspect]
     Indication: RHEUMATOID ARTHRITIS
     Dosage: PREDOHAN
     Route: 048
  17. LORNOXICAM [Suspect]
     Indication: RHEUMATOID ARTHRITIS
     Route: 048
  18. FLURBIPROFEN [Concomitant]
     Indication: RHEUMATOID ARTHRITIS
     Dosage: FORM: TAPE, DOSAGE UNCERTAIN, DRUG:ADOFEED
     Route: 062
  19. PURSENNID [Concomitant]
     Route: 048
  20. ACTEMRA [Suspect]
     Route: 041
     Dates: start: 20090121, end: 20090121
  21. ACTEMRA [Suspect]
     Route: 041
     Dates: start: 20090805, end: 20100510
  22. PREDNISOLONE AND PREDNISOLONE ACETATE AND PREDNISOLONE SODIUM SUCCINAT [Suspect]
     Indication: RHEUMATOID ARTHRITIS
     Route: 048
  23. CARBOPLATIN [Suspect]
     Indication: LUNG ADENOCARCINOMA
     Route: 041
     Dates: start: 20100625, end: 20100721
  24. LANSOPRAZOLE [Concomitant]
     Indication: GASTRITIS
     Dosage: FORM: PERORAL AGENT.
     Route: 048
  25. ACTEMRA [Suspect]
     Route: 041
     Dates: start: 20080904, end: 20080904
  26. METALCAPTASE [Concomitant]
     Indication: RHEUMATOID ARTHRITIS
     Route: 048
  27. ISONIAZID [Concomitant]
     Indication: ANTIBIOTIC PROPHYLAXIS
     Route: 048
  28. ACTEMRA [Suspect]
     Route: 041
     Dates: start: 20090218, end: 20090218
  29. ACTEMRA [Suspect]
     Route: 041
     Dates: start: 20090319, end: 20090319
  30. PLETAL [Concomitant]
     Indication: ARTERIAL OCCLUSIVE DISEASE
     Route: 048
  31. ALENDRONATE SODIUM [Concomitant]
     Indication: OSTEOPOROSIS
     Route: 048
  32. CYTOTEC [Concomitant]
     Indication: GASTRITIS
     Route: 048
  33. LEVOFLOXACIN [Concomitant]
     Route: 048
  34. HALCION [Concomitant]
     Route: 048
  35. ACTEMRA [Suspect]
     Route: 041
     Dates: start: 20081224, end: 20081224
  36. ACTEMRA [Suspect]
     Route: 041
     Dates: start: 20090415, end: 20090415
  37. PREDNISOLONE AND PREDNISOLONE ACETATE AND PREDNISOLONE SODIUM SUCCINAT [Suspect]
     Route: 048
     Dates: start: 20100625, end: 20100806
  38. RIFADIN [Concomitant]
     Indication: ANTIBIOTIC PROPHYLAXIS
     Route: 048
  39. ACTEMRA [Suspect]
     Route: 041
     Dates: start: 20090513, end: 20090513
  40. PEMETREXED DISODIUM [Suspect]
     Indication: LUNG ADENOCARCINOMA
     Route: 041
     Dates: start: 20100625, end: 20100721
  41. FLURBIPROFEN [Concomitant]
     Dosage: FORM: TAPE, NOTE: DOSAGE IS UNCERTAIN.
     Route: 062

REACTIONS (17)
  - SMALL INTESTINE ULCER [None]
  - ATRIAL FIBRILLATION [None]
  - SMALL INTESTINAL PERFORATION [None]
  - PLEURAL EFFUSION [None]
  - TACHYCARDIA [None]
  - STAPHYLOCOCCAL INFECTION [None]
  - BLOOD UREA INCREASED [None]
  - C-REACTIVE PROTEIN INCREASED [None]
  - GASTRITIS [None]
  - LUNG ADENOCARCINOMA [None]
  - LUMBAR SPINAL STENOSIS [None]
  - DIARRHOEA [None]
  - INFECTIOUS PERITONITIS [None]
  - GASTROINTESTINAL AMYLOIDOSIS [None]
  - JOINT SURGERY [None]
  - CARDIAC FAILURE [None]
  - PYREXIA [None]
